FAERS Safety Report 7288256-1 (Version None)
Quarter: 2011Q1

REPORT INFORMATION
  Report Type: 
  Country: None (occurrence: None)
  Receive Date: 20110211
  Receipt Date: 20110201
  Transmission Date: 20110831
  Serious: Yes (Death, Hospitalization)
  Sender: FDA-Public Use
  Company Number: DE-JNJFOC-20110200764

PATIENT
  Sex: Female

DRUGS (7)
  1. LEFLUNOMIDE [Concomitant]
  2. INFLIXIMAB, RECOMBINANT [Suspect]
     Indication: POLYARTHRITIS
     Route: 042
  3. PREDNISOLONE [Concomitant]
  4. ARAVA [Concomitant]
  5. IBUPROFEN [Concomitant]
  6. LEFLUNOMIDE [Concomitant]
  7. DICLOFENAC [Concomitant]

REACTIONS (9)
  - CARDIAC FAILURE ACUTE [None]
  - ACUTE RESPIRATORY FAILURE [None]
  - MULTI-ORGAN FAILURE [None]
  - RENAL FAILURE ACUTE [None]
  - ACUTE RESPIRATORY DISTRESS SYNDROME [None]
  - RHEUMATOID ARTHRITIS [None]
  - CARDIOPULMONARY FAILURE [None]
  - CYANOSIS [None]
  - SUBCUTANEOUS ABSCESS [None]
